FAERS Safety Report 4661996-6 (Version None)
Quarter: 2005Q2

REPORT INFORMATION
  Report Type: 
  Country: None (occurrence: None)
  Receive Date: 20050512
  Receipt Date: 20050503
  Transmission Date: 20051028
  Serious: Yes (Death, Other)
  Sender: FDA-Public Use
  Company Number: 2005070068

PATIENT
  Sex: Male

DRUGS (1)
  1. GEODON [Suspect]
     Indication: ILL-DEFINED DISORDER
     Dosage: 180 MG (90 MG, 2 IN 1 D), ORAL
     Route: 048

REACTIONS (1)
  - HEAT STROKE [None]
